FAERS Safety Report 6490080-4 (Version None)
Quarter: 2009Q4

REPORT INFORMATION
  Report Type: 
  Country: None (occurrence: None)
  Receive Date: 20091211
  Receipt Date: 20081218
  Transmission Date: 20100525
  Serious: No
  Sender: FDA-Public Use
  Company Number: A0761210A

PATIENT
  Sex: Female

DRUGS (2)
  1. FLUTICASONE [Suspect]
     Indication: DRUG USE FOR UNKNOWN INDICATION
     Route: 065
  2. PREDNISONE [Suspect]
     Route: 065

REACTIONS (4)
  - BREAST MASS [None]
  - DEPRESSION [None]
  - PULMONARY MYCOSIS [None]
  - SINUSITIS [None]
